FAERS Safety Report 4353181-2 (Version None)
Quarter: 2004Q2

REPORT INFORMATION
  Report Type: 
  Country: None (occurrence: None)
  Receive Date: 20040429
  Receipt Date: 20040421
  Transmission Date: 20050107
  Serious: Yes (Hospitalization)
  Sender: FDA-Public Use
  Company Number: US-JNJFOC-20040405031

PATIENT
  Age: 24 Year
  Sex: Female

DRUGS (3)
  1. NORGESTIMATE AND ETHINYL ESTRADIOL [Suspect]
     Indication: CONTRACEPTION
     Dosage: 1 DOSE (S), 1 IN 1 DAY, ORAL
     Route: 048
     Dates: start: 20040101, end: 20040410
  2. NORGESTIMATE AND ETHINYL ESTRADIOL [Suspect]
     Indication: MENSTRUAL DISORDER
     Dosage: 1 DOSE (S), 1 IN 1 DAY, ORAL
     Route: 048
     Dates: start: 20040101, end: 20040410
  3. ORTHO TRI-CYCLEN [Suspect]
     Indication: CONTRACEPTION

REACTIONS (2)
  - CHOLECYSTECTOMY [None]
  - COLITIS ISCHAEMIC [None]
